FAERS Safety Report 7506898-2 (Version None)
Quarter: 2011Q2

REPORT INFORMATION
  Report Type: 
  Country: None (occurrence: None)
  Receive Date: 20110526
  Receipt Date: 20110526
  Transmission Date: 20111010
  Serious: Yes (Death, Hospitalization)
  Sender: FDA-Public Use
  Company Number: JP-ABBOTT-10P-087-0689451-00

PATIENT
  Sex: Female
  Weight: 65.8 kg

DRUGS (4)
  1. CELECOXIB [Concomitant]
     Indication: RHEUMATOID ARTHRITIS
     Dosage: 400MG DAILY
  2. PREDNISOLONE [Concomitant]
     Indication: RHEUMATOID ARTHRITIS
     Dosage: 3MG DAILY
     Route: 048
  3. DEXAMETHASONE PALMITATE [Concomitant]
     Indication: RHEUMATOID ARTHRITIS
     Dosage: 4.0 MG, 1 AMPOULE DAILY
     Route: 042
     Dates: start: 20100727, end: 20100727
  4. HUMIRA [Suspect]
     Indication: RHEUMATOID ARTHRITIS
     Route: 058
     Dates: start: 20100415, end: 20100723

REACTIONS (1)
  - CERVIX CANCER METASTATIC [None]
